FAERS Safety Report 25005197 (Version 2)
Quarter: 2025Q1

REPORT INFORMATION
  Report Type: Spontaneous
  Country: BR (occurrence: BR)
  Receive Date: 20250224
  Receipt Date: 20250305
  Transmission Date: 20250409
  Serious: No
  Sender: AMGEN
  Company Number: BR-AMGEN-BRASP2025033639

PATIENT

DRUGS (1)
  1. PEGFILGRASTIM [Suspect]
     Active Substance: PEGFILGRASTIM
     Indication: Product used for unknown indication
     Route: 065

REACTIONS (1)
  - Device adhesion issue [Unknown]
